FAERS Safety Report 6546378-4 (Version None)
Quarter: 2010Q1

REPORT INFORMATION
  Report Type: 
  Country: None (occurrence: None)
  Receive Date: 20100122
  Receipt Date: 20100120
  Transmission Date: 20100710
  Serious: Yes (Life-Threatening)
  Sender: FDA-Public Use
  Company Number: JP-ASTRAZENECA-2009SE24531

PATIENT
  Age: 89 Year
  Sex: Female
  Weight: 45 kg

DRUGS (7)
  1. ANAPEINE [Suspect]
     Indication: EPIDURAL ANAESTHESIA
     Dosage: WITH DILUTED (BY TWENTY THOUSAND-FOLD) EPINEPHRINE
     Route: 008
     Dates: start: 20090617, end: 20090617
  2. SEVOFLURANE [Suspect]
     Indication: INDUCTION OF ANAESTHESIA
     Route: 055
     Dates: start: 20090617, end: 20090617
  3. HALOPERIDOL [Suspect]
     Indication: DEMENTIA
     Dosage: DOSE UNKNOWN, INTERMITTENTLY ADMINISTERED.
     Route: 065
  4. XYLOCAINE [Concomitant]
     Indication: EPIDURAL TEST DOSE
     Dosage: 2ML
     Route: 008
     Dates: start: 20090617, end: 20090617
  5. FENTANYL CITRATE [Concomitant]
     Route: 042
  6. PROPOFOL [Concomitant]
     Indication: INDUCTION OF ANAESTHESIA
     Route: 042
     Dates: start: 20090617, end: 20090617
  7. CEFAMEZIN ALPHA [Concomitant]
     Route: 041
     Dates: start: 20090617, end: 20090617

REACTIONS (1)
  - TORSADE DE POINTES [None]
